FAERS Safety Report 5890779-4 (Version None)
Quarter: 2008Q3

REPORT INFORMATION
  Report Type: 
  Country: None (occurrence: None)
  Receive Date: 20080918
  Receipt Date: 20080909
  Transmission Date: 20090109
  Serious: Yes (Hospitalization)
  Sender: FDA-Public Use
  Company Number: URSO-2008-098

PATIENT
  Age: 82 Year
  Sex: Female

DRUGS (11)
  1. URSO 250 [Suspect]
     Indication: CHOLELITHIASIS
     Dosage: 400 MG/DAY
     Route: 048
     Dates: end: 20080814
  2. ENALAPRIL MALEATE [Suspect]
     Route: 048
  3. AMLODIPINE BESYLATE [Suspect]
     Route: 048
  4. ASPIRIN [Suspect]
     Route: 048
  5. MUCODYNE (CARBOCISTEINE) [Suspect]
     Route: 048
  6. UNIPHYL [Suspect]
     Route: 048
  7. CLARITIN [Suspect]
     Route: 048
  8. SINGULAIR [Suspect]
     Route: 048
  9. INTAL [Suspect]
     Route: 045
  10. PULMICORT [Suspect]
     Route: 061
  11. MOHRUS (KETOPROFEN) [Suspect]
     Route: 061

REACTIONS (3)
  - NEPHROPATHY [None]
  - OFF LABEL USE [None]
  - VASCULITIS [None]
